FAERS Safety Report 16387899 (Version 3)
Quarter: 2019Q3

REPORT INFORMATION
  Report Type: Spontaneous
  Country: US (occurrence: US)
  Receive Date: 20190604
  Receipt Date: 20190718
  Transmission Date: 20191004
  Serious: Yes (Hospitalization)
  Sender: FDA-Public Use
  Company Number: US-SA-2019SA151142

PATIENT
  Age: 65 Year
  Sex: Female

DRUGS (2)
  1. DUPILUMAB [Suspect]
     Active Substance: DUPILUMAB
     Indication: ASTHMA
     Dosage: 300 MG, QOW
  2. DUPILUMAB [Suspect]
     Active Substance: DUPILUMAB
     Indication: ECZEMA
     Dosage: UNK
     Dates: start: 201811

REACTIONS (7)
  - Tendon rupture [Recovering/Resolving]
  - Hordeolum [Recovered/Resolved]
  - Fall [Unknown]
  - Eye pain [Not Recovered/Not Resolved]
  - Ocular hyperaemia [Recovered/Resolved]
  - Hordeolum [Recovered/Resolved]
  - Eye swelling [Unknown]

NARRATIVE: CASE EVENT DATE: 20190402
